FAERS Safety Report 12562376 (Version 1)
Quarter: 2016Q3

REPORT INFORMATION
  Report Type: Spontaneous
  Country: FR (occurrence: FR)
  Receive Date: 20160715
  Receipt Date: 20160715
  Transmission Date: 20161109
  Serious: Yes (Hospitalization)
  Sender: FDA-Public Use
  Company Number: FR-TEVA-675069ISR

PATIENT
  Age: 70 Year
  Sex: Female
  Weight: 52 kg

DRUGS (10)
  1. MABTHERA [Suspect]
     Active Substance: RITUXIMAB
     Indication: NON-HODGKIN^S LYMPHOMA
     Dosage: R-CHOP PROTOCOL
     Dates: start: 201512, end: 20160502
  2. VINCRISTINE HOSPIRA [Suspect]
     Active Substance: VINCRISTINE
     Indication: NON-HODGKIN^S LYMPHOMA
     Dosage: R-CHOP PROTOCOL
     Dates: start: 201512, end: 20160502
  3. EUPANTOL [Concomitant]
     Active Substance: PANTOPRAZOLE SODIUM
     Dosage: 20 MILLIGRAM DAILY; LONG-STANDING TREATMENT
  4. DOCORUBICINE TEVA [Suspect]
     Active Substance: DOXORUBICIN
     Indication: NON-HODGKIN^S LYMPHOMA
     Dosage: R-CHOP PROTOCOL
     Dates: start: 201512, end: 20160502
  5. ENDOXAN [Suspect]
     Active Substance: CYCLOPHOSPHAMIDE
     Indication: NON-HODGKIN^S LYMPHOMA
     Dosage: R-CHOP PROTOCOL
     Dates: start: 201512, end: 20160502
  6. CORTANCYL [Suspect]
     Active Substance: PREDNISONE
     Dosage: R-CHOP PROTOCOL
     Dates: start: 201512, end: 20160502
  7. DIFFU K [Concomitant]
     Active Substance: POTASSIUM CHLORIDE
     Dosage: LONG-STANDING TREATMENT
  8. GRANOCYTE [Concomitant]
     Active Substance: LENOGRASTIM
     Dates: start: 20160504, end: 20160513
  9. FORLAX [Concomitant]
     Active Substance: POLYETHYLENE GLYCOL 4000
     Dosage: 2 DOSAGE FORMS DAILY; LONG-STANDING TREATMENT
  10. ALDACTAZINE [Concomitant]
     Active Substance: ALTHIAZIDE\SPIRONOLACTONE
     Dosage: .5 DOSAGE FORMS DAILY; LONG-STANDING TREATMENT

REACTIONS (4)
  - Septic shock [Recovered/Resolved]
  - Febrile bone marrow aplasia [Recovered/Resolved]
  - Febrile neutropenia [Recovered/Resolved]
  - Bacteraemia [Recovered/Resolved]

NARRATIVE: CASE EVENT DATE: 20160511
